FAERS Safety Report 18662217 (Version 2)
Quarter: 2021Q1

REPORT INFORMATION
  Report Type: Report from Study
  Country: US (occurrence: US)
  Receive Date: 20201224
  Receipt Date: 20210324
  Transmission Date: 20210419
  Serious: Yes (Other)
  Sender: FDA-Public Use
  Company Number: US-INSMED, INC.-US-INS-20-00784

PATIENT
  Sex: Female

DRUGS (2)
  1. ARIKAYCE [Suspect]
     Active Substance: AMIKACIN
     Dosage: 590 MILLIGRAM, QD
     Route: 055
     Dates: start: 2020, end: 2020
  2. ARIKAYCE [Suspect]
     Active Substance: AMIKACIN
     Indication: PRODUCT USED FOR UNKNOWN INDICATION
     Dosage: 590 MILLIGRAM, QD
     Route: 055
     Dates: start: 20200122, end: 2020

REACTIONS (7)
  - Gastrostomy [Unknown]
  - Product dose omission issue [Unknown]
  - Dysphonia [Not Recovered/Not Resolved]
  - Drug intolerance [Unknown]
  - Weight decreased [Unknown]
  - Seasonal allergy [Not Recovered/Not Resolved]
  - Malaise [Not Recovered/Not Resolved]

NARRATIVE: CASE EVENT DATE: 2020
